FAERS Safety Report 23863430 (Version 1)
Quarter: 2024Q2

REPORT INFORMATION
  Report Type: Spontaneous
  Country: GB (occurrence: GB)
  Receive Date: 20240516
  Receipt Date: 20240516
  Transmission Date: 20240715
  Serious: Yes (Disabling, Other)
  Sender: FDA-Public Use
  Company Number: None

PATIENT
  Sex: Female

DRUGS (2)
  1. LOSARTAN POTASSIUM [Suspect]
     Active Substance: LOSARTAN POTASSIUM
     Dosage: UNK
  2. INDAPAMIDE [Concomitant]
     Active Substance: INDAPAMIDE
     Dosage: UNK

REACTIONS (7)
  - Arthralgia [Unknown]
  - Myalgia [Unknown]
  - Weight bearing difficulty [Unknown]
  - Muscle spasms [Unknown]
  - Headache [Unknown]
  - Cough [Unknown]
  - Wheezing [Unknown]
